FAERS Safety Report 23096805 (Version 1)
Quarter: 2023Q4

REPORT INFORMATION
  Report Type: Spontaneous
  Country: PL (occurrence: PL)
  Receive Date: 20231023
  Receipt Date: 20231023
  Transmission Date: 20240110
  Serious: Yes (Death, Hospitalization, Other)
  Sender: FDA-Public Use
  Company Number: PL-DMAXPROD-230629-01

PATIENT
  Age: 64 Year

DRUGS (7)
  1. CHONDROITIN SULFATE (BOVINE) [Concomitant]
     Active Substance: CHONDROITIN SULFATE (BOVINE)
     Indication: Abdominal pain upper
     Route: 065
  2. METOPROLOL [Concomitant]
     Active Substance: METOPROLOL
     Indication: Atrial fibrillation
     Dosage: 50 MG, QD
     Route: 065
  3. PROPAFENONE [Concomitant]
     Active Substance: PROPAFENONE
     Indication: Atrial fibrillation
     Dosage: 2 X 150 MG
     Route: 065
  4. DIPHENHYDRAMINE [Interacting]
     Active Substance: DIPHENHYDRAMINE
     Indication: Arthralgia
     Dosage: AT NIGHT
     Route: 065
  5. OMEPRAZOLE [Interacting]
     Active Substance: OMEPRAZOLE
     Indication: Abdominal pain upper
     Dosage: 40 MG / 24 HOURS
     Route: 065
  6. ACETAMINOPHEN [Interacting]
     Active Substance: ACETAMINOPHEN
     Indication: Arthralgia
     Dosage: 1000 MG 2 X 24 HOURS DURING THE DAY
     Route: 065
  7. WARFARIN [Interacting]
     Active Substance: WARFARIN
     Indication: Anticoagulant therapy
     Dosage: VARIABLE DOSES
     Route: 065

REACTIONS (6)
  - Subarachnoid haemorrhage [Fatal]
  - Loss of consciousness [Unknown]
  - Drug interaction [Fatal]
  - Product prescribing error [Fatal]
  - Abdominal pain upper [Unknown]
  - Drug ineffective [Unknown]
